FAERS Safety Report 15993183 (Version 2)
Quarter: 2019Q2

REPORT INFORMATION
  Report Type: Spontaneous
  Country: FI (occurrence: FI)
  Receive Date: 20190222
  Receipt Date: 20190405
  Transmission Date: 20190711
  Serious: Yes (Other)
  Sender: FDA-Public Use
  Company Number: FI-AMGEN-FINSP2019028323

PATIENT
  Age: 34 Year
  Sex: Female

DRUGS (10)
  1. RELVAR [Concomitant]
     Active Substance: FLUTICASONE FUROATE\VILANTEROL TRIFENATATE
     Indication: ASTHMA
     Dosage: UNK
     Route: 065
  2. DESLORATADINE ACTAVIS [Concomitant]
     Active Substance: DESLORATADINE
     Indication: ASTHMA
  3. MIRANAX [NAPROXEN] [Concomitant]
     Indication: MIGRAINE
     Route: 065
  4. AIMOVIG [Suspect]
     Active Substance: ERENUMAB-AOOE
     Dosage: 140 MG, UNK
     Route: 065
     Dates: start: 20190102, end: 20190102
  5. MIGARID [Suspect]
     Active Substance: FLUNARIZINE HYDROCHLORIDE
     Indication: MIGRAINE
     Dosage: UNK
     Route: 065
     Dates: start: 20181220, end: 20181220
  6. PRONAXEN [Concomitant]
     Active Substance: NAPROXEN
     Indication: MIGRAINE
     Route: 065
  7. AIMOVIG [Suspect]
     Active Substance: ERENUMAB-AOOE
     Indication: MIGRAINE
     Dosage: 140 MG, UNK
     Route: 065
     Dates: start: 20181203
  8. DESLORATADINE ACTAVIS [Concomitant]
     Active Substance: DESLORATADINE
     Indication: NASAL CONGESTION
     Route: 065
  9. VENTOLINE [SALBUTAMOL] [Concomitant]
     Active Substance: ALBUTEROL SULFATE
     Indication: ASTHMA
     Dosage: UNK
     Route: 065
  10. ESOMEPRAZOL ORION [Concomitant]
     Active Substance: ESOMEPRAZOLE MAGNESIUM
     Indication: ACUTE ABDOMEN
     Dosage: 20 MG, QD (IN THE EVENING)
     Route: 065

REACTIONS (14)
  - Panic disorder [Unknown]
  - Feeling abnormal [Recovered/Resolved]
  - Constipation [Recovered/Resolved]
  - Dizziness [Recovered/Resolved]
  - Hyperhidrosis [Unknown]
  - Hypothermia [Recovered/Resolved]
  - Cold sweat [Recovered/Resolved]
  - Blood pressure fluctuation [Recovered/Resolved]
  - Blood pressure increased [Recovered/Resolved]
  - Drug ineffective [Unknown]
  - Nausea [Recovered/Resolved]
  - Blood pressure diastolic increased [Recovered/Resolved]
  - Anxiety [Recovered/Resolved]
  - Malaise [Unknown]

NARRATIVE: CASE EVENT DATE: 201812
